FAERS Safety Report 12157650 (Version 1)
Quarter: 2016Q1

REPORT INFORMATION
  Report Type: Spontaneous
  Country: US (occurrence: None)
  Receive Date: 20160307
  Receipt Date: 20160307
  Transmission Date: 20160526
  Serious: Yes (Other)
  Sender: FDA-Public Use
  Company Number: None

PATIENT
  Age: 57 Year
  Sex: Male
  Weight: 88.45 kg

DRUGS (5)
  1. NORVASC [Concomitant]
     Active Substance: AMLODIPINE BESYLATE
  2. COENZYME Q10 [Concomitant]
     Active Substance: UBIDECARENONE
  3. ESZOPICLONE 3 MG GLENMARK [Suspect]
     Active Substance: ESZOPICLONE
     Indication: SLEEP DISORDER
     Dosage: 30 AT BEDTIME TAKEN BY MOUTH
     Route: 048
     Dates: start: 20140701, end: 20160304
  4. RED YEAST RICE [Concomitant]
     Active Substance: DIETARY SUPPLEMENT
  5. HYZAAR [Concomitant]
     Active Substance: HYDROCHLOROTHIAZIDE\LOSARTAN POTASSIUM

REACTIONS (2)
  - No therapeutic response [None]
  - Product substitution issue [None]

NARRATIVE: CASE EVENT DATE: 20160304
